FAERS Safety Report 10877042 (Version 2)
Quarter: 2015Q1

REPORT INFORMATION
  Report Type: Spontaneous
  Country: CA (occurrence: CA)
  Receive Date: 20150302
  Receipt Date: 20150305
  Transmission Date: 20150721
  Serious: Yes (Other)
  Sender: FDA-Public Use
  Company Number: CA-ROCHE-1545627

PATIENT
  Sex: Female

DRUGS (4)
  1. HERCEPTIN [Suspect]
     Active Substance: TRASTUZUMAB
     Indication: BREAST CANCER
     Dosage: LOADING DOSE- ADDED IN CYCLE 2
     Route: 042
     Dates: start: 20150210
  2. HERCEPTIN [Suspect]
     Active Substance: TRASTUZUMAB
     Dosage: MAINTENANCE DOSE
     Route: 042
  3. DOCETAXEL. [Concomitant]
     Active Substance: DOCETAXEL
     Indication: BREAST CANCER
     Dosage: STARTED APPROX 4 WEEKS BEFORE 26-FEB-2015
     Route: 065
     Dates: start: 2015
  4. CYCLOPHOSPHAMIDE. [Concomitant]
     Active Substance: CYCLOPHOSPHAMIDE
     Indication: BREAST CANCER
     Dosage: STARTED APPROX 4 WEEKS BEFORE 26-FEB-2015
     Route: 065
     Dates: start: 2015

REACTIONS (6)
  - Vasculitis [Unknown]
  - Renal tubular necrosis [Recovering/Resolving]
  - Vomiting [Recovered/Resolved]
  - Nausea [Recovered/Resolved]
  - Viral infection [Unknown]
  - Renal failure [Recovering/Resolving]
